FAERS Safety Report 18688793 (Version 1)
Quarter: 2020Q4

REPORT INFORMATION
  Report Type: Spontaneous
  Country: SK (occurrence: SK)
  Receive Date: 20201231
  Receipt Date: 20201231
  Transmission Date: 20210114
  Serious: Yes (Other)
  Sender: FDA-Public Use
  Company Number: SK-JNJFOC-20201255104

PATIENT
  Age: 56 Year
  Sex: Male

DRUGS (1)
  1. SIMPONI [Suspect]
     Active Substance: GOLIMUMAB
     Indication: RHEUMATOID ARTHRITIS
     Route: 058
     Dates: start: 20120819

REACTIONS (2)
  - Respiratory tract infection [Recovered/Resolved]
  - Foot deformity [Recovered/Resolved]

NARRATIVE: CASE EVENT DATE: 201502
